FAERS Safety Report 9778342 (Version 1)
Quarter: 2013Q4

REPORT INFORMATION
  Report Type: Spontaneous
  Country: JP (occurrence: JP)
  Receive Date: 20131223
  Receipt Date: 20131223
  Transmission Date: 20140711
  Serious: Yes (Hospitalization, Other)
  Sender: FDA-Public Use
  Company Number: PHHY2013JP146332

PATIENT
  Age: 72 Year
  Sex: Female

DRUGS (2)
  1. SYMMETREL [Suspect]
     Indication: PARKINSON^S DISEASE
     Route: 048
  2. ZONISAMIDE [Suspect]
     Route: 048

REACTIONS (9)
  - Pneumonia [Unknown]
  - Rapid eye movements sleep abnormal [Unknown]
  - Abdominal discomfort [Unknown]
  - Hallucination, visual [Unknown]
  - Delirium [Unknown]
  - Movement disorder [Unknown]
  - Dyskinesia [Recovered/Resolved]
  - Mood altered [Unknown]
  - Drug ineffective [Unknown]
